FAERS Safety Report 21741161 (Version 1)
Quarter: 2022Q4

REPORT INFORMATION
  Report Type: Spontaneous
  Country: US (occurrence: US)
  Receive Date: 20221216
  Receipt Date: 20221216
  Transmission Date: 20230113
  Serious: No
  Sender: FDA-Public Use
  Company Number: US-DSJP-DSU-2022-145330

PATIENT
  Sex: Female

DRUGS (1)
  1. ENHERTU [Suspect]
     Active Substance: FAM-TRASTUZUMAB DERUXTECAN-NXKI
     Indication: Breast cancer female
     Dosage: 5.4 MG/KG
     Route: 065
     Dates: start: 20220816

REACTIONS (3)
  - Oedema [Unknown]
  - Radiation necrosis [Unknown]
  - Brain oedema [Unknown]

NARRATIVE: CASE EVENT DATE: 20221128
